FAERS Safety Report 6601247-6 (Version None)
Quarter: 2010Q1

REPORT INFORMATION
  Report Type: 
  Country: None (occurrence: None)
  Receive Date: 20100225
  Receipt Date: 20100223
  Transmission Date: 20100710
  Serious: Yes (Hospitalization)
  Sender: FDA-Public Use
  Company Number: US-ROXANE LABORATORIES, INC.-2010-RO-00196RO

PATIENT
  Sex: Female

DRUGS (7)
  1. PREDNISONE [Suspect]
     Indication: ASTHMA
     Dosage: 20 MG
     Route: 048
  2. PREDNISONE [Suspect]
     Route: 048
  3. CORTISONE [Concomitant]
     Indication: ASTHMA
  4. ALBUTEROL [Concomitant]
     Indication: ASTHMA
  5. COMBIVENT [Concomitant]
     Indication: ASTHMA
     Route: 055
  6. VENTOLIN [Concomitant]
     Indication: ASTHMA
     Route: 055
  7. BUDESONIDE [Concomitant]

REACTIONS (3)
  - DRUG INEFFECTIVE [None]
  - OSTEOPOROSIS [None]
  - SPINAL FRACTURE [None]
